FAERS Safety Report 8299558-4 (Version None)
Quarter: 2012Q2

REPORT INFORMATION
  Report Type: 
  Country: None (occurrence: None)
  Receive Date: 20120419
  Receipt Date: 20120412
  Transmission Date: 20120825
  Serious: Yes (Death, Hospitalization)
  Sender: FDA-Public Use
  Company Number: US-GLAXOSMITHKLINE-A0789374A

PATIENT
  Age: 56 Year
  Sex: Male

DRUGS (3)
  1. STARLIX [Concomitant]
  2. LIPITOR [Concomitant]
  3. AVANDIA [Suspect]
     Indication: DIABETES MELLITUS
     Dosage: 2MG TWICE PER DAY
     Route: 048

REACTIONS (2)
  - CARDIAC DISORDER [None]
  - ELECTROCARDIOGRAM QT PROLONGED [None]
